FAERS Safety Report 12504184 (Version 1)
Quarter: 2016Q2

REPORT INFORMATION
  Report Type: Spontaneous
  Country: JP (occurrence: JP)
  Receive Date: 20160628
  Receipt Date: 20160628
  Transmission Date: 20160815
  Serious: Yes (Hospitalization)
  Sender: FDA-Public Use
  Company Number: JP-IPCA LABORATORIES LIMITED-IPC201606-000532

PATIENT
  Age: 66 Year
  Sex: Female

DRUGS (2)
  1. FUROSEMIDE. [Suspect]
     Active Substance: FUROSEMIDE
  2. CISPLATIN. [Concomitant]
     Active Substance: CISPLATIN

REACTIONS (4)
  - Kidney rupture [Unknown]
  - Abdominal pain [Unknown]
  - Ureteric rupture [Unknown]
  - Hydronephrosis [Unknown]
